FAERS Safety Report 5227912-3 (Version None)
Quarter: 2007Q1

REPORT INFORMATION
  Report Type: 
  Country: None (occurrence: None)
  Receive Date: 20070202
  Receipt Date: 20070124
  Transmission Date: 20070707
  Serious: Yes (Other)
  Sender: FDA-Public Use
  Company Number: DE-PFIZER INC-2006086139

PATIENT
  Sex: Female
  Weight: 78 kg

DRUGS (4)
  1. SU-011,248 [Suspect]
     Indication: METASTATIC RENAL CELL CARCINOMA
     Route: 048
  2. LEVOTHYROXINE SODIUM [Concomitant]
     Route: 048
  3. PANTOPRAZOL [Concomitant]
     Route: 048
     Dates: start: 20060609
  4. ESTRADIOL [Concomitant]
     Route: 061
     Dates: start: 20030101

REACTIONS (1)
  - VISUAL FIELD DEFECT [None]
